FAERS Safety Report 8572035-9 (Version None)
Quarter: 2012Q3

REPORT INFORMATION
  Report Type: 
  Country: None (occurrence: None)
  Receive Date: 20120806
  Receipt Date: 20120730
  Transmission Date: 20120928
  Serious: Yes (Life-Threatening, Hospitalization, Other)
  Sender: FDA-Public Use
  Company Number: PHHY2012FR055453

PATIENT
  Sex: Female

DRUGS (8)
  1. LEVOCARNIL [Concomitant]
     Dosage: UNK UKN, UNK
  2. DANTRIUM [Concomitant]
     Dosage: UNK UKN, UNK
  3. TROSPIUM CHLORIDE [Concomitant]
     Dosage: UNK UKN, UNK
  4. VESICARE [Concomitant]
     Dosage: UNK UKN, UNK
  5. GILENYA [Suspect]
     Indication: MULTIPLE SCLEROSIS
     Dosage: 0.5 MG, QD
     Route: 048
     Dates: start: 20120329, end: 20120602
  6. LIORESAL [Concomitant]
     Dosage: UNK UKN, UNK
  7. PIROXICAM [Concomitant]
     Dosage: UNK UKN, UNK
  8. AMINOPYRIDINE [Concomitant]
     Dosage: UNK UKN, UNK

REACTIONS (42)
  - GASTROINTESTINAL DISORDER [None]
  - FATIGUE [None]
  - ACUTE RESPIRATORY FAILURE [None]
  - BREATH SOUNDS ABNORMAL [None]
  - SINUS TACHYCARDIA [None]
  - DISTURBANCE IN ATTENTION [None]
  - HYPERTHERMIA [None]
  - MYOCARDITIS [None]
  - HAEMOLYSIS [None]
  - BLOOD URIC ACID DECREASED [None]
  - ASPARTATE AMINOTRANSFERASE INCREASED [None]
  - CANDIDIASIS [None]
  - CHEST X-RAY ABNORMAL [None]
  - BLOOD GLUCOSE INCREASED [None]
  - DYSPNOEA [None]
  - PROLONGED EXPIRATION [None]
  - LYMPHOCYTE COUNT DECREASED [None]
  - EJECTION FRACTION DECREASED [None]
  - MITRAL VALVE INCOMPETENCE [None]
  - THROMBOCYTOPENIA [None]
  - ANISOCYTOSIS [None]
  - LEFT VENTRICULAR DYSFUNCTION [None]
  - PULMONARY OEDEMA [None]
  - PERICARDIAL EFFUSION [None]
  - HAEMOLYTIC URAEMIC SYNDROME [None]
  - ESCHERICHIA TEST POSITIVE [None]
  - HYPERHIDROSIS [None]
  - BLOOD LACTATE DEHYDROGENASE INCREASED [None]
  - COMA URAEMIC [None]
  - ALTERED STATE OF CONSCIOUSNESS [None]
  - CARDIAC FAILURE [None]
  - HYPOKINESIA [None]
  - ALANINE AMINOTRANSFERASE INCREASED [None]
  - GRAND MAL CONVULSION [None]
  - RENAL FAILURE [None]
  - CONVULSION [None]
  - ESCHERICHIA URINARY TRACT INFECTION [None]
  - RESPIRATORY DISORDER [None]
  - HAEMOGLOBIN DECREASED [None]
  - BLOOD CREATININE INCREASED [None]
  - BLOOD UREA INCREASED [None]
  - CONFUSIONAL STATE [None]
